FAERS Safety Report 8860426 (Version 1)
Quarter: 2012Q4

REPORT INFORMATION
  Report Type: 
  Country: MX (occurrence: MX)
  Receive Date: 20121025
  Receipt Date: 20121025
  Transmission Date: 20130627
  Serious: Yes (Other)
  Sender: FDA-Public Use
  Company Number: PHHY2012MX095331

PATIENT
  Sex: Female

DRUGS (1)
  1. EXELON PATCH [Suspect]
     Indication: DEMENTIA ALZHEIMER^S TYPE
     Dosage: (4.6 mg/ 5cm2), daily
     Route: 062

REACTIONS (1)
  - Condition aggravated [Not Recovered/Not Resolved]
